FAERS Safety Report 4704675-9 (Version None)
Quarter: 2005Q2

REPORT INFORMATION
  Report Type: 
  Country: None (occurrence: None)
  Receive Date: 20050630
  Receipt Date: 20050211
  Transmission Date: 20051028
  Serious: Yes (Hospitalization, Other)
  Sender: FDA-Public Use
  Company Number: US-MERCK-0502USA01720

PATIENT
  Age: 59 Year
  Sex: Male
  Weight: 80 kg

DRUGS (7)
  1. VIOXX [Suspect]
     Indication: OSTEOARTHRITIS
     Route: 048
     Dates: start: 20020101, end: 20040901
  2. VIOXX [Suspect]
     Route: 048
  3. ZOCOR [Concomitant]
     Indication: BLOOD CHOLESTEROL INCREASED
     Route: 048
     Dates: start: 19980101
  4. ZOCOR [Concomitant]
     Route: 048
  5. LASIX [Concomitant]
     Indication: SWELLING
     Route: 048
  6. WELCHOL [Concomitant]
     Route: 048
  7. ASPIRIN [Concomitant]
     Route: 065
     Dates: start: 19980101

REACTIONS (6)
  - CARPAL TUNNEL DECOMPRESSION [None]
  - CHEST PAIN [None]
  - HYPERTRIGLYCERIDAEMIA [None]
  - MYOCARDIAL INFARCTION [None]
  - ROAD TRAFFIC ACCIDENT [None]
  - SHOULDER OPERATION [None]
